FAERS Safety Report 13381677 (Version 1)
Quarter: 2017Q1

REPORT INFORMATION
  Report Type: Spontaneous
  Country: US (occurrence: US)
  Receive Date: 20170329
  Receipt Date: 20170329
  Transmission Date: 20170429
  Serious: Yes (Other)
  Sender: FDA-Public Use
  Company Number: US-LUNDBECK-DKLU2028363

PATIENT
  Sex: Male

DRUGS (1)
  1. NORTHERA [Suspect]
     Active Substance: DROXIDOPA
     Indication: PRODUCT USED FOR UNKNOWN INDICATION
     Dosage: TITRATION COMPLETE
     Route: 065
     Dates: start: 20140909

REACTIONS (11)
  - Urinary retention [Unknown]
  - Oscillopsia [Unknown]
  - Urinary tract infection [Unknown]
  - Constipation [Unknown]
  - Condition aggravated [Unknown]
  - Poor quality sleep [Unknown]
  - Lacrimation increased [Unknown]
  - Asthenia [Unknown]
  - Fatigue [Unknown]
  - Dysphagia [Unknown]
  - Fall [Unknown]
